FAERS Safety Report 9620000 (Version 1)
Quarter: 2013Q4

REPORT INFORMATION
  Report Type: Spontaneous
  Country: US (occurrence: US)
  Receive Date: 20131014
  Receipt Date: 20131014
  Transmission Date: 20140711
  Serious: No
  Sender: FDA-Public Use
  Company Number: US-PFIZER INC-2013291105

PATIENT
  Age: 53 Year
  Sex: Female

DRUGS (1)
  1. ZOLOFT [Suspect]
     Dosage: UNK
     Dates: start: 2013

REACTIONS (3)
  - Arthritis [Unknown]
  - Carpal tunnel syndrome [Unknown]
  - Pain [Unknown]
